FAERS Safety Report 13162771 (Version 1)
Quarter: 2017Q1

REPORT INFORMATION
  Report Type: Spontaneous
  Country: US (occurrence: US)
  Receive Date: 20170128
  Receipt Date: 20170128
  Transmission Date: 20170428
  Serious: Yes (Life-Threatening, Disabling, Other)
  Sender: FDA-Public Use
  Company Number: None

PATIENT
  Age: 50 Year
  Sex: Female
  Weight: 63 kg

DRUGS (9)
  1. CANE [Concomitant]
  2. WALKER [Concomitant]
  3. FENTANYL TRANSDERMAL SYSTEM [Concomitant]
     Active Substance: FENTANYL
  4. HYDROMORPHONE [Concomitant]
     Active Substance: HYDROMORPHONE
  5. ALPRAZOLAM. [Concomitant]
     Active Substance: ALPRAZOLAM
  6. CLONIDINE. [Concomitant]
     Active Substance: CLONIDINE
  7. ADDERALL [Concomitant]
     Active Substance: AMPHETAMINE ASPARTATE\AMPHETAMINE SULFATE\DEXTROAMPHETAMINE SACCHARATE\DEXTROAMPHETAMINE SULFATE
  8. ASPIRIN. [Concomitant]
     Active Substance: ASPIRIN
  9. .01 MG CLONIDINE [Suspect]
     Active Substance: CLONIDINE
     Indication: NERVOUS SYSTEM DISORDER
     Dosage: ?          QUANTITY:300 TABLET(S);?4 TIMES A DAY ORAL
     Route: 048
     Dates: start: 20161026, end: 20170118

REACTIONS (3)
  - Wrong drug administered [None]
  - Drug screen positive [None]
  - Drug dispensing error [None]

NARRATIVE: CASE EVENT DATE: 20161026
